FAERS Safety Report 6141799-6 (Version None)
Quarter: 2009Q2

REPORT INFORMATION
  Report Type: 
  Country: None (occurrence: None)
  Receive Date: 20090402
  Receipt Date: 20090205
  Transmission Date: 20091009
  Serious: No
  Sender: FDA-Public Use
  Company Number: US-ABBOTT-09P-163-0502427-00

PATIENT
  Sex: Female
  Weight: 49.94 kg

DRUGS (3)
  1. LUPRON DEPOT [Suspect]
     Indication: HAEMORRHAGE
     Route: 030
     Dates: start: 20090106
  2. LUPRON DEPOT [Suspect]
     Indication: UTERINE LEIOMYOMA
  3. HERBAL SUPPLEMENT [Concomitant]
     Indication: UTERINE LEIOMYOMA
     Dosage: NOT REPORTED

REACTIONS (3)
  - EMOTIONAL DISORDER [None]
  - HOT FLUSH [None]
  - MENORRHAGIA [None]
